FAERS Safety Report 7742706-2 (Version None)
Quarter: 2011Q3

REPORT INFORMATION
  Report Type: 
  Country: None (occurrence: None)
  Receive Date: 20110912
  Receipt Date: 20110831
  Transmission Date: 20111222
  Serious: Yes (Death, Hospitalization)
  Sender: FDA-Public Use
  Company Number: JP-CELGENEUS-087-50794-11063437

PATIENT
  Age: 80 Year
  Sex: Male

DRUGS (18)
  1. LANSOPRAZOLE [Concomitant]
     Route: 065
     Dates: start: 20110615, end: 20110617
  2. SALOBEL [Concomitant]
     Route: 065
     Dates: start: 20110606, end: 20110617
  3. LEVOFLOXACIN [Concomitant]
     Route: 065
     Dates: start: 20110531, end: 20110604
  4. GRANISETRON [Concomitant]
     Route: 065
     Dates: start: 20110509, end: 20110513
  5. LASIX [Concomitant]
     Route: 065
     Dates: start: 20110615, end: 20110617
  6. HYDROXYUREA [Concomitant]
     Indication: THROMBOSIS PROPHYLAXIS
     Route: 065
  7. GRANISETRON [Concomitant]
     Route: 065
     Dates: start: 20110331, end: 20110406
  8. HYDREA [Concomitant]
     Route: 065
     Dates: start: 20110615, end: 20110615
  9. WHOLE BLOOD [Concomitant]
     Route: 041
     Dates: start: 20110601, end: 20110601
  10. MAGNESIUM SULFATE [Concomitant]
     Route: 065
     Dates: start: 20110414, end: 20110617
  11. HYDREA [Concomitant]
     Route: 065
     Dates: start: 20110616, end: 20110617
  12. MEIACT [Concomitant]
     Route: 065
     Dates: start: 20110525, end: 20110531
  13. TAMSULOSIN HCL [Concomitant]
     Route: 065
     Dates: end: 20110617
  14. VIDAZA [Suspect]
     Dosage: 100 MILLIGRAM
     Route: 041
     Dates: start: 20110606, end: 20110610
  15. DIURETICS [Concomitant]
     Route: 048
     Dates: start: 20110615
  16. VIDAZA [Suspect]
     Dosage: 100 MILLIGRAM
     Route: 041
     Dates: start: 20110331, end: 20110406
  17. VIDAZA [Suspect]
     Dosage: 100 MILLIGRAM
     Route: 041
     Dates: start: 20110509, end: 20110513
  18. ASPIRIN [Concomitant]
     Route: 065
     Dates: start: 20110615, end: 20110617

REACTIONS (12)
  - MYELODYSPLASTIC SYNDROME TRANSFORMATION [None]
  - LOSS OF CONSCIOUSNESS [None]
  - OEDEMA PERIPHERAL [None]
  - RENAL DISORDER [None]
  - WHITE BLOOD CELL COUNT INCREASED [None]
  - RED BLOOD CELL COUNT DECREASED [None]
  - HAEMOGLOBIN DECREASED [None]
  - HYPERURICAEMIA [None]
  - SUBARACHNOID HAEMORRHAGE [None]
  - HYPERKALAEMIA [None]
  - CEREBRAL HAEMORRHAGE [None]
  - RESPIRATORY ARREST [None]
